FAERS Safety Report 5134294-4 (Version None)
Quarter: 2006Q4

REPORT INFORMATION
  Report Type: 
  Country: None (occurrence: None)
  Receive Date: 20060831
  Receipt Date: 20060727
  Transmission Date: 20070319
  Serious: No
  Sender: FDA-Public Use
  Company Number: 2006-BP-07713BP

PATIENT
  Age: 82 Year
  Sex: Female

DRUGS (7)
  1. SPIRIVA [Suspect]
     Indication: CHRONIC OBSTRUCTIVE PULMONARY DISEASE
     Dosage: 18 MCG(18 MCG,QD),IH
     Dates: start: 20040101
  2. ADVAIR (SERETIDE /01420901/) [Suspect]
     Indication: CHRONIC OBSTRUCTIVE PULMONARY DISEASE
  3. XOPENEX [Suspect]
     Indication: CHRONIC OBSTRUCTIVE PULMONARY DISEASE
  4. ALBUTEROL [Concomitant]
  5. PLAVIX [Concomitant]
  6. SYNTHROID [Concomitant]
  7. OXYGEN (OXYGEN) [Concomitant]

REACTIONS (3)
  - BLOOD GLUCOSE INCREASED [None]
  - DYSPHONIA [None]
  - PNEUMONIA [None]
